FAERS Safety Report 10178285 (Version 3)
Quarter: 2014Q2

REPORT INFORMATION
  Report Type: Report from Study
  Country: DE (occurrence: DE)
  Receive Date: 20140519
  Receipt Date: 20140602
  Transmission Date: 20141212
  Serious: Yes (Hospitalization, Other)
  Sender: FDA-Public Use
  Company Number: PHHY2014DE059340

PATIENT
  Sex: Male
  Weight: 66 kg

DRUGS (9)
  1. ICL670A [Suspect]
     Indication: IRON OVERLOAD
     Dosage: 1000 MG, QD
     Route: 048
     Dates: start: 20140128
  2. ICL670A [Suspect]
     Indication: SERUM FERRITIN INCREASED
  3. FINURAL [Concomitant]
     Indication: BENIGN PROSTATIC HYPERPLASIA
     Dosage: 5 MG, DAILY
  4. DIOVAN [Concomitant]
     Indication: HYPERTENSION
     Dosage: 80 MG, DAILY
  5. TARGIN [Concomitant]
     Indication: PAIN
     Dosage: 25 MG, DAILY
     Dates: start: 20131007
  6. NOVALGIN                                /SCH/ [Concomitant]
     Indication: PAIN
     Dosage: 2000 MG, DAILY
     Dates: start: 20131007
  7. ARCOXIA [Concomitant]
     Indication: SPINAL COMPRESSION FRACTURE
     Dosage: 60 MG, DAILY
     Dates: start: 20131227
  8. ACLASTA [Concomitant]
     Indication: SPINAL COMPRESSION FRACTURE
     Dosage: 5 MG, DAILY
     Dates: start: 20140108, end: 20140108
  9. MERONEM [Concomitant]

REACTIONS (3)
  - Pneumonia [Recovered/Resolved]
  - Atrial fibrillation [Recovered/Resolved]
  - Hypotension [Unknown]
